FAERS Safety Report 5913781-2 (Version None)
Quarter: 2008Q4

REPORT INFORMATION
  Report Type: 
  Country: None (occurrence: None)
  Receive Date: 20081007
  Receipt Date: 20080922
  Transmission Date: 20090506
  Serious: Yes (Hospitalization)
  Sender: FDA-Public Use
  Company Number: 2008002474

PATIENT
  Age: 68 Year
  Sex: Female
  Weight: 59 kg

DRUGS (11)
  1. ERLOTINIB (ERLOTINIB) (TABLET) (ERLOTINIB) [Suspect]
     Indication: LUNG ADENOCARCINOMA
     Dosage: (150 MG,QD), ORAL
     Route: 048
     Dates: start: 20080515
  2. LENDORM [Concomitant]
  3. ALOSENN (ALOSENN) [Concomitant]
  4. MAGNESIUM OXIDE (MAGNEISUM OXIDE) [Concomitant]
  5. DIOVAN [Concomitant]
  6. LOXONIN (LOXOPROFEN SODIUM) [Concomitant]
  7. RHYTHMY (RILMAZAFONE) [Concomitant]
  8. GASTER D [Concomitant]
  9. ACTONEL (RISEDRONATE ACID) [Concomitant]
  10. ZOMETA [Concomitant]
  11. SODIUM HYALURONATE (HYALURONATE SODIUM) [Concomitant]

REACTIONS (4)
  - HENOCH-SCHONLEIN PURPURA [None]
  - HYPERBILIRUBINAEMIA [None]
  - PARONYCHIA [None]
  - RASH [None]
